FAERS Safety Report 11104866 (Version 1)
Quarter: 2015Q2

REPORT INFORMATION
  Report Type: Report from Study
  Country: US (occurrence: US)
  Receive Date: 20150511
  Receipt Date: 20150511
  Transmission Date: 20150821
  Serious: Yes (Death)
  Sender: FDA-Public Use
  Company Number: US-SA-2015SA057265

PATIENT
  Age: 67 Year
  Sex: Male
  Weight: 61.7 kg

DRUGS (13)
  1. 5 FU [Suspect]
     Active Substance: FLUOROURACIL
     Indication: OESOPHAGEAL CANCER METASTATIC
     Route: 040
     Dates: start: 20150413, end: 20150413
  2. ATIVAN [Concomitant]
     Active Substance: LORAZEPAM
     Indication: ANXIETY
     Dosage: PO Q4H PRN NAUSEA, ANXIETY X 30 DAYS
     Route: 048
  3. ATORVASTATIN [Concomitant]
     Active Substance: ATORVASTATIN
     Route: 048
  4. CARAFATE [Concomitant]
     Active Substance: SUCRALFATE
     Dosage: (1 G/10 ML ORAL SUSP MT-) PQ QID X 7 DAYS
     Route: 048
  5. 5 FU [Suspect]
     Active Substance: FLUOROURACIL
     Indication: OESOPHAGEAL CANCER METASTATIC
     Route: 041
     Dates: start: 20150413, end: 20150413
  6. ASPIRIN. [Concomitant]
     Active Substance: ASPIRIN
     Route: 048
  7. ATIVAN [Concomitant]
     Active Substance: LORAZEPAM
     Indication: NAUSEA
     Dosage: PO Q4H PRN NAUSEA, ANXIETY X 30 DAYS
     Route: 048
  8. COMPAZINE [Concomitant]
     Active Substance: PROCHLORPERAZINE MALEATE
     Indication: NAUSEA
     Dosage: (10MG TABLET TAKE 1) PO Q6H PRN NAUSEA X 30 DAYS
     Route: 048
  9. ZIV-AFLIBERCEPT [Suspect]
     Active Substance: ZIV-AFLIBERCEPT
     Indication: OESOPHAGEAL CANCER METASTATIC
     Route: 041
     Dates: start: 20150413, end: 20150413
  10. ATENOLOL. [Concomitant]
     Active Substance: ATENOLOL
     Route: 048
  11. ZOFRAN [Concomitant]
     Active Substance: ONDANSETRON HYDROCHLORIDE
     Indication: NAUSEA
     Dosage: (8MG TABLET TAKE 1) PP 08H PRN NAUSEA X?30 DAYS
     Route: 048
  12. LEUCOVORIN [Suspect]
     Active Substance: LEUCOVORIN
     Indication: OESOPHAGEAL CANCER METASTATIC
     Route: 041
     Dates: start: 20150413, end: 20150413
  13. OXALIPLATIN. [Suspect]
     Active Substance: OXALIPLATIN
     Indication: OESOPHAGEAL CANCER METASTATIC
     Route: 041
     Dates: start: 20150413, end: 20150413

REACTIONS (1)
  - Death [Fatal]

NARRATIVE: CASE EVENT DATE: 20150427
